FAERS Safety Report 22122867 (Version 1)
Quarter: 2023Q1

REPORT INFORMATION
  Report Type: Spontaneous
  Country: MY (occurrence: MY)
  Receive Date: 20230322
  Receipt Date: 20230322
  Transmission Date: 20230418
  Serious: Yes (Other)
  Sender: FDA-Public Use
  Company Number: MY-BoehringerIngelheim-2023-BI-226256

PATIENT
  Age: 32 Year
  Sex: Male

DRUGS (1)
  1. PRAMIPEXOLE [Suspect]
     Active Substance: PRAMIPEXOLE
     Indication: Parkinson^s disease

REACTIONS (2)
  - Dementia [Recovered/Resolved]
  - Hallucination [Recovered/Resolved]
